FAERS Safety Report 4673800-0 (Version None)
Quarter: 2005Q2

REPORT INFORMATION
  Report Type: 
  Country: None (occurrence: None)
  Receive Date: 20050524
  Receipt Date: 20050520
  Transmission Date: 20051028
  Serious: Yes (Disabling)
  Sender: FDA-Public Use
  Company Number: TPG2005A00158

PATIENT
  Sex: Female

DRUGS (1)
  1. LANSOPRAZOLE [Suspect]
     Indication: REFLUX OESOPHAGITIS
     Dosage: PER ORAL
     Route: 048

REACTIONS (4)
  - BODY HEIGHT DECREASED [None]
  - GASTRITIS [None]
  - IRON DEFICIENCY ANAEMIA [None]
  - SPINAL FRACTURE [None]
